FAERS Safety Report 12211132 (Version 1)
Quarter: 2016Q1

REPORT INFORMATION
  Report Type: Spontaneous
  Country: US (occurrence: None)
  Receive Date: 20160324
  Receipt Date: 20160324
  Transmission Date: 20160526
  Serious: No
  Sender: FDA-Public Use
  Company Number: None

PATIENT
  Age: 38 Year
  Sex: Male

DRUGS (1)
  1. HUMIRA [Suspect]
     Active Substance: ADALIMUMAB
     Indication: PSORIATIC ARTHROPATHY
     Dosage: UNKNOWN TO ON HOLD??EVERY OTHER WEEK
     Route: 058

REACTIONS (2)
  - Ear discomfort [None]
  - Sinusitis [None]

NARRATIVE: CASE EVENT DATE: 20160313
